FAERS Safety Report 24354095 (Version 1)
Quarter: 2024Q3

REPORT INFORMATION
  Report Type: Spontaneous
  Country: ES (occurrence: ES)
  Receive Date: 20240923
  Receipt Date: 20240923
  Transmission Date: 20241016
  Serious: Yes (Death, Other)
  Sender: INCYTE
  Company Number: ES-INCYTE CORPORATION-2024IN009999

PATIENT

DRUGS (1)
  1. TAFASITAMAB [Suspect]
     Active Substance: TAFASITAMAB
     Dosage: UNK
     Route: 065

REACTIONS (2)
  - Death [Fatal]
  - Disease progression [Unknown]
